FAERS Safety Report 15116354 (Version 2)
Quarter: 2018Q3

REPORT INFORMATION
  Report Type: Spontaneous
  Country: CN (occurrence: CN)
  Receive Date: 20180706
  Receipt Date: 20180710
  Transmission Date: 20181010
  Serious: Yes (Disabling, Other)
  Sender: FDA-Public Use
  Company Number: CN-PFIZER INC-2018268366

PATIENT
  Age: 90 Year
  Sex: Male
  Weight: 70 kg

DRUGS (22)
  1. CLOPIDOGREL SULFATE [Suspect]
     Active Substance: CLOPIDOGREL BISULFATE
     Indication: PLATELET AGGREGATION
     Dosage: 75 MG, 1X/DAY
     Route: 048
     Dates: start: 20180428
  2. DEPROTEINIZED CALF BLOOD EXTRACTIVE [Concomitant]
     Indication: NUTRITIONAL SUPPLEMENTATION
     Dosage: 800 MG, 1X/DAY
     Route: 041
     Dates: start: 20180428, end: 20180503
  3. DIPROPHYLLINE [Concomitant]
     Active Substance: DYPHYLLINE
     Indication: INFLAMMATION
     Dosage: 0.75 G, 1X/DAY
     Dates: start: 20180428, end: 20180503
  4. CEFOPERAZONE SODIUM AND SULBACTAM SODIUM [Suspect]
     Active Substance: CEFOPERAZONE SODIUM\SULBACTAM SODIUM
     Indication: LUNG INFECTION
     Dosage: 1.5 G, 2X/DAY
     Route: 041
     Dates: start: 20180428, end: 20180430
  5. SODIUM CHLORIDE. [Suspect]
     Active Substance: SODIUM CHLORIDE
     Indication: PROPHYLAXIS
  6. AMBROXOL HYDROCHLORIDE [Concomitant]
     Active Substance: AMBROXOL HYDROCHLORIDE
     Indication: PRODUCTIVE COUGH
     Dosage: UNK
     Dates: start: 20180428
  7. SODIUM CHLORIDE. [Concomitant]
     Active Substance: SODIUM CHLORIDE
     Indication: VEHICLE SOLUTION USE
     Dosage: 100 ML, 2X/DAY
     Route: 041
     Dates: start: 20180428, end: 20180503
  8. GLUCOSE [Concomitant]
     Active Substance: DEXTROSE
     Indication: VEHICLE SOLUTION USE
     Dosage: 250 ML, 1X/DAY
     Route: 041
     Dates: start: 20180428, end: 20180503
  9. CLOPIDOGREL SULFATE [Suspect]
     Active Substance: CLOPIDOGREL BISULFATE
     Indication: ANTICOAGULANT THERAPY
  10. GLUCOSE [Concomitant]
     Active Substance: DEXTROSE
     Dosage: 44 ML, 1X/DAY
     Dates: start: 20180428, end: 20180503
  11. SHENMAI [Concomitant]
     Indication: CARDIOVASCULAR DISORDER
     Dosage: 60 ML, 1X/DAY
     Route: 041
     Dates: start: 20180428, end: 20180503
  12. SODIUM CHLORIDE. [Suspect]
     Active Substance: SODIUM CHLORIDE
     Indication: LUNG INFECTION
     Dosage: 50 ML, 1X/DAY
     Dates: start: 20180429
  13. ASPIRIN (E.C.) [Suspect]
     Active Substance: ASPIRIN
     Indication: PLATELET AGGREGATION
     Dosage: 100 MG, 1X/DAY
     Route: 048
     Dates: start: 20180429
  14. KAI SHUN [Concomitant]
     Active Substance: AMBROXOL HYDROCHLORIDE
     Indication: PRODUCTIVE COUGH
     Dosage: 30 MG, 2X/DAY
     Route: 041
     Dates: start: 20180428, end: 20180503
  15. ENOXAPARIN SODIUM. [Suspect]
     Active Substance: ENOXAPARIN SODIUM
     Indication: PLATELET AGGREGATION
     Dosage: 4000 IU, 1X/DAY
     Route: 058
     Dates: start: 20180429
  16. DIPROPHYLLINE [Concomitant]
     Active Substance: DYPHYLLINE
     Indication: ASTHMA
  17. SODIUM CHLORIDE. [Concomitant]
     Active Substance: SODIUM CHLORIDE
     Dosage: 250 ML, 1X/DAY
     Route: 041
     Dates: start: 20180428, end: 20180503
  18. SODIUM CHLORIDE. [Suspect]
     Active Substance: SODIUM CHLORIDE
     Indication: VEHICLE SOLUTION USE
     Dosage: 100 ML, 2X/DAY
     Route: 041
     Dates: start: 20180428
  19. LIPITOR [Suspect]
     Active Substance: ATORVASTATIN CALCIUM
     Indication: PLAQUE SHIFT
     Dosage: 20 MG, 1X/DAY
     Route: 048
     Dates: start: 20180428, end: 20180502
  20. CEFOPERAZONE SODIUM AND SULBACTAM SODIUM [Suspect]
     Active Substance: CEFOPERAZONE SODIUM\SULBACTAM SODIUM
     Dosage: 3 G, 2X/DAY
     Route: 041
     Dates: start: 20180501
  21. LANSOPRAZOLE. [Suspect]
     Active Substance: LANSOPRAZOLE
     Indication: PROPHYLAXIS
     Dosage: 30 MG, 1X/DAY
     Dates: start: 20180429
  22. 18?AMINO ACID [Concomitant]
     Indication: NUTRITIONAL SUPPLEMENTATION
     Dosage: 8.06 G, 1X/DAY
     Route: 041
     Dates: start: 20180428, end: 20180503

REACTIONS (10)
  - Restlessness [Unknown]
  - Oxygen saturation decreased [Unknown]
  - Hepatic function abnormal [Unknown]
  - Wheezing [Recovering/Resolving]
  - Blood bilirubin increased [Unknown]
  - Liver function test increased [Unknown]
  - Drug-induced liver injury [Unknown]
  - Respiratory rate increased [Unknown]
  - Full blood count increased [Unknown]
  - Alanine aminotransferase increased [Unknown]

NARRATIVE: CASE EVENT DATE: 20180429
